FAERS Safety Report 14232402 (Version 1)
Quarter: 2017Q4

REPORT INFORMATION
  Report Type: Spontaneous
  Country: JP (occurrence: JP)
  Receive Date: 20171128
  Receipt Date: 20171128
  Transmission Date: 20180321
  Serious: Yes (Other)
  Sender: FDA-Public Use
  Company Number: JP-MYLANLABS-2017M1074166

PATIENT
  Age: 65 Year
  Sex: Male

DRUGS (3)
  1. RIFAMPICIN [Suspect]
     Active Substance: RIFAMPIN
     Indication: INFECTIVE TENOSYNOVITIS
     Route: 065
  2. ETHAMBUTOL [Suspect]
     Active Substance: ETHAMBUTOL HYDROCHLORIDE
     Indication: INFECTIVE TENOSYNOVITIS
     Route: 065
  3. CLARITHROMYCIN. [Suspect]
     Active Substance: CLARITHROMYCIN
     Indication: INFECTIVE TENOSYNOVITIS
     Route: 065

REACTIONS (3)
  - Condition aggravated [Recovering/Resolving]
  - Paradoxical drug reaction [Recovering/Resolving]
  - Infective tenosynovitis [Recovering/Resolving]
